FAERS Safety Report 5519559-6 (Version None)
Quarter: 2007Q4

REPORT INFORMATION
  Report Type: 
  Country: None (occurrence: None)
  Receive Date: 20071116
  Receipt Date: 20071105
  Transmission Date: 20080405
  Serious: Yes (Hospitalization)
  Sender: FDA-Public Use
  Company Number: B0495530A

PATIENT
  Age: 86 Year
  Sex: Female

DRUGS (14)
  1. VENTOLIN [Suspect]
     Indication: DRUG USE FOR UNKNOWN INDICATION
     Route: 055
     Dates: start: 20070213
  2. ATROVENT [Suspect]
     Indication: DRUG USE FOR UNKNOWN INDICATION
     Route: 065
     Dates: start: 20070213
  3. MAREVAN [Concomitant]
  4. TENORMIN [Concomitant]
  5. DIURAL [Concomitant]
  6. LEVOTHYROXINE SODIUM [Concomitant]
  7. ALLOPUR [Concomitant]
  8. BRICANYL [Concomitant]
  9. EMCONCOR [Concomitant]
  10. DIGITOXIN TAB [Concomitant]
  11. COZAAR [Concomitant]
  12. VENTOLIN [Concomitant]
  13. ERYTHROMYCIN [Concomitant]
  14. PREDNISOLONE [Concomitant]

REACTIONS (7)
  - CARDIAC FAILURE [None]
  - DIARRHOEA [None]
  - DYSPNOEA [None]
  - FEELING ABNORMAL [None]
  - GENERAL PHYSICAL HEALTH DETERIORATION [None]
  - HYDROTHORAX [None]
  - NAUSEA [None]
